FAERS Safety Report 15320011 (Version 1)
Quarter: 2018Q3

REPORT INFORMATION
  Report Type: Spontaneous
  Country: US (occurrence: US)
  Receive Date: 20180820
  Receipt Date: 20180820
  Transmission Date: 20181010
  Serious: Yes (Hospitalization)
  Sender: FDA-Public Use
  Company Number: None

PATIENT
  Age: 66 Year
  Sex: Male
  Weight: 69.58 kg

DRUGS (3)
  1. NANOLIPOSOMAL IRINOTECAN 43 MG/M2 [Suspect]
     Active Substance: IRINOTECAN HYDROCHLORIDE
     Dates: start: 20180726, end: 20180807
  2. TEMOZOLOMIDE 25 MG/M2/DAY [Suspect]
     Active Substance: TEMOZOLOMIDE
     Indication: GLIOBLASTOMA
     Route: 048
     Dates: start: 20180626, end: 20180815
  3. NANOLIPOSOMAL IRINOTECAN 43 MG/M2 [Suspect]
     Active Substance: IRINOTECAN HYDROCHLORIDE
     Indication: GLIOBLASTOMA
     Dosage: ?          OTHER FREQUENCY:Q 2 WEEKS;?
     Route: 042
     Dates: start: 20180626, end: 20180710

REACTIONS (1)
  - Femoral neck fracture [None]

NARRATIVE: CASE EVENT DATE: 20180816
